FAERS Safety Report 11528850 (Version 2)
Quarter: 2016Q1

REPORT INFORMATION
  Report Type: Spontaneous
  Country: US (occurrence: US)
  Receive Date: 20150921
  Receipt Date: 20160111
  Transmission Date: 20160525
  Serious: No
  Sender: FDA-Public Use
  Company Number: US-PFIZER INC-2015312003

PATIENT
  Age: 73 Year
  Sex: Female

DRUGS (13)
  1. GABAPENTIN. [Suspect]
     Active Substance: GABAPENTIN
     Dosage: UNK
     Dates: start: 2005
  2. MECLIZINE HCL [Concomitant]
     Indication: VERTIGO
     Dosage: 12.5 MG, 1-2 TABLETS 3X/DAY AS NEEDED
     Route: 048
     Dates: start: 2013
  3. ADVAIR HFA [Concomitant]
     Active Substance: FLUTICASONE PROPIONATE\SALMETEROL XINAFOATE
     Indication: ASTHMA
     Dosage: 250/50 INHALER, 2X/DAY
     Dates: start: 2015
  4. PROPOFOL. [Concomitant]
     Active Substance: PROPOFOL
     Indication: ANAESTHESIA
     Dosage: UNK
  5. TRAMADOL HCL [Concomitant]
     Active Substance: TRAMADOL HYDROCHLORIDE
     Dosage: 50MG ONE-TWO  TABLETS BY MOUTH EVERY 6 HOURS AS NEEDED, BUT NEVER TAKES TWO, ONLY TAKES ONE
     Route: 048
     Dates: start: 2014
  6. ESCITALOPRAM [Concomitant]
     Active Substance: ESCITALOPRAM OXALATE
     Indication: DEPRESSION
     Dosage: 10 MG, 1X/DAY
     Route: 048
     Dates: start: 2015
  7. ATORVASTATIN [Concomitant]
     Active Substance: ATORVASTATIN
     Indication: BLOOD CHOLESTEROL ABNORMAL
     Dosage: 10 MG, 1X/DAY
     Route: 048
     Dates: start: 2005
  8. TIKOSYN [Concomitant]
     Active Substance: DOFETILIDE
     Indication: ATRIAL FIBRILLATION
     Dosage: 125 MG, 2X/DAY
     Route: 048
  9. PROPOFOL. [Concomitant]
     Active Substance: PROPOFOL
     Indication: CARDIAC DISORDER
  10. XARELTO [Concomitant]
     Active Substance: RIVAROXABAN
     Indication: PROPHYLAXIS
     Dosage: 20 MG, DAILY
     Route: 048
     Dates: start: 2015
  11. TYLENOL EXTRA STRENGTH [Concomitant]
     Active Substance: ACETAMINOPHEN
     Indication: ARTHRITIS
     Dosage: 500 MG, TAKE TWO IN MORNING FOR ARTHRITIS MIGHT TAKE AGAIN AT BEDTIME BUT NOT ALWAYS, TAKES AS NEED
     Dates: start: 2000
  12. TIKOSYN [Concomitant]
     Active Substance: DOFETILIDE
     Indication: HEART RATE IRREGULAR
  13. GABAPENTIN. [Suspect]
     Active Substance: GABAPENTIN
     Indication: PAIN
     Dosage: 300MG 1 CAPSULE AFTER BREAKFAST, 1 AFTER LUNCH AND TWO AT BEDTIME
     Route: 048

REACTIONS (1)
  - Drug ineffective for unapproved indication [Unknown]
